FAERS Safety Report 25177562 (Version 1)
Quarter: 2025Q2

REPORT INFORMATION
  Report Type: Spontaneous
  Country: US (occurrence: US)
  Receive Date: 20250409
  Receipt Date: 20250409
  Transmission Date: 20250716
  Serious: No
  Sender: MACLEODS
  Company Number: US-MACLEODS PHARMA-MAC2025052459

PATIENT

DRUGS (1)
  1. LEVOTHYROXINE [Suspect]
     Active Substance: LEVOTHYROXINE
     Indication: Product used for unknown indication
     Route: 065

REACTIONS (5)
  - Aphasia [Unknown]
  - Speech disorder [Unknown]
  - Thyroxine increased [Unknown]
  - Product substitution issue [Unknown]
  - Adverse drug reaction [Unknown]
